FAERS Safety Report 15346517 (Version 7)
Quarter: 2023Q1

REPORT INFORMATION
  Report Type: Spontaneous
  Country: US (occurrence: US)
  Receive Date: 20180904
  Receipt Date: 20230207
  Transmission Date: 20230417
  Serious: Yes (Other)
  Sender: FDA-Public Use
  Company Number: US-PFIZER INC-2018354256

PATIENT
  Age: 75 Year
  Sex: Female
  Weight: 92 kg

DRUGS (3)
  1. XELJANZ XR [Suspect]
     Active Substance: TOFACITINIB CITRATE
     Indication: Rheumatoid arthritis
     Dosage: 11 MG, 1X/DAY
     Route: 048
  2. OMEGA Q PLUS [Concomitant]
     Indication: Asthenia
     Dosage: 2 DF(SOFT GELS), DAILY
     Route: 048
  3. VALSARTAN [Concomitant]
     Active Substance: VALSARTAN
     Indication: Blood pressure abnormal
     Dosage: 1 DF, 1X/DAY
     Route: 048

REACTIONS (4)
  - Urinary tract infection [Unknown]
  - Herpes zoster [Unknown]
  - Sinusitis [Recovering/Resolving]
  - Headache [Unknown]

NARRATIVE: CASE EVENT DATE: 20180826
